FAERS Safety Report 19014646 (Version 1)
Quarter: 2021Q1

REPORT INFORMATION
  Report Type: Spontaneous
  Country: US (occurrence: US)
  Receive Date: 20210316
  Receipt Date: 20210316
  Transmission Date: 20210420
  Serious: Yes (Hospitalization)
  Sender: FDA-Public Use
  Company Number: US-GW PHARMA-202103USGW01091

PATIENT

DRUGS (7)
  1. BENTYL [Concomitant]
     Active Substance: DICYCLOMINE HYDROCHLORIDE
     Indication: PRODUCT USED FOR UNKNOWN INDICATION
     Dosage: UNK
     Route: 065
  2. FYCOMPA [Concomitant]
     Active Substance: PERAMPANEL
     Indication: PRODUCT USED FOR UNKNOWN INDICATION
     Dosage: UNK
     Route: 065
  3. EPIDIOLEX [Suspect]
     Active Substance: CANNABIDIOL
     Indication: TUBEROUS SCLEROSIS COMPLEX
     Dosage: 25 MILLIGRAM/KILOGRAM, QD
     Route: 048
     Dates: end: 202102
  4. VIMPAT [Concomitant]
     Active Substance: LACOSAMIDE
     Indication: SEIZURE
     Dosage: UNK
     Route: 065
  5. ONFI [Concomitant]
     Active Substance: CLOBAZAM
     Indication: PRODUCT USED FOR UNKNOWN INDICATION
     Dosage: UNK
     Route: 065
  6. EPIDIOLEX [Suspect]
     Active Substance: CANNABIDIOL
     Indication: LENNOX-GASTAUT SYNDROME
     Dosage: UNK
     Route: 048
     Dates: start: 2019
  7. EPIDIOLEX [Suspect]
     Active Substance: CANNABIDIOL
     Dosage: SLIGHTLY REDUCED (PATIENT WANTS THE DOCTOR TO INCREASE THE EPIDIOLEX AGAIN)
     Route: 048
     Dates: start: 202102

REACTIONS (4)
  - Urinary retention [Unknown]
  - Ileus [Unknown]
  - Ammonia abnormal [Unknown]
  - Prescribed overdose [Unknown]
